FAERS Safety Report 5745897-8 (Version None)
Quarter: 2008Q2

REPORT INFORMATION
  Report Type: 
  Country: None (occurrence: None)
  Receive Date: 20080520
  Receipt Date: 20080506
  Transmission Date: 20081010
  Serious: Yes (Life-Threatening, Hospitalization)
  Sender: FDA-Public Use
  Company Number: CLOF-10759

PATIENT
  Age: 20 Year
  Sex: Male
  Weight: 53.6 kg

DRUGS (21)
  1. CLOFARABINE (CLOFARABINE) [Suspect]
     Indication: ACUTE LYMPHOCYTIC LEUKAEMIA
     Dosage: 68 MG, QD, INTRAVENOUS
     Route: 042
     Dates: start: 20071101, end: 20071105
  2. ETOPOSIDE [Suspect]
     Indication: ACUTE LYMPHOCYTIC LEUKAEMIA
     Dosage: 170 MG, QD, INTRAVENOUS
     Route: 042
     Dates: start: 20071101, end: 20071105
  3. CYCLOPHOSPHAMIDE [Suspect]
     Indication: ACUTE LYMPHOCYTIC LEUKAEMIA
     Dosage: 748 MG, QD, INTRAVENOUS
     Route: 042
     Dates: start: 20071101, end: 20071105
  4. ACETAMINOPHEN [Concomitant]
  5. ACYCLOVIR [Concomitant]
  6. ALLOPURINOL [Concomitant]
  7. CEFEPIME [Concomitant]
  8. BENADRYL [Concomitant]
  9. DRONABINOL [Concomitant]
  10. NEUPOGEN [Concomitant]
  11. PANTOPRAZOLE SODIUM [Concomitant]
  12. POTASSIUM PHOSPHATES [Concomitant]
  13. VANCOMYCIN [Concomitant]
  14. MIDAZOLAM HCL [Concomitant]
  15. GRANULOCYTE COLONY STIMULATING FACTOR (GRANULOCYTE COLONY STIMULATING [Concomitant]
  16. VORICONAZOLE (VORICONAZOLE) [Concomitant]
  17. AMPHOTERICIN (AMPHOTERICIN) [Concomitant]
  18. VITAMIN K (MENADIONE) [Concomitant]
  19. PROTONIX [Concomitant]
  20. MORPHINE [Concomitant]
  21. DOPAMINE HCL [Concomitant]

REACTIONS (50)
  - ACUTE INTERSTITIAL PNEUMONITIS [None]
  - ACUTE RESPIRATORY DISTRESS SYNDROME [None]
  - ADENOVIRUS INFECTION [None]
  - ALANINE AMINOTRANSFERASE INCREASED [None]
  - ANORECTAL INFECTION BACTERIAL [None]
  - ASCITES [None]
  - ASPARTATE AMINOTRANSFERASE INCREASED [None]
  - BLOOD ALBUMIN DECREASED [None]
  - BLOOD ALKALINE PHOSPHATASE INCREASED [None]
  - BLOOD PRESSURE DECREASED [None]
  - CARDIAC FAILURE [None]
  - CATHETER RELATED INFECTION [None]
  - CHOLELITHIASIS [None]
  - CHOLESTASIS [None]
  - CLOSTRIDIUM DIFFICILE COLITIS [None]
  - COAGULOPATHY [None]
  - CRYPTOGENIC ORGANISING PNEUMONIA [None]
  - CULTURE WOUND POSITIVE [None]
  - DECUBITUS ULCER [None]
  - DIARRHOEA [None]
  - DIFFUSE ALVEOLAR DAMAGE [None]
  - ENTEROCOCCAL BACTERAEMIA [None]
  - ENTEROCOCCAL INFECTION [None]
  - FATIGUE [None]
  - FEBRILE NEUTROPENIA [None]
  - GENERALISED OEDEMA [None]
  - HAEMATOCRIT DECREASED [None]
  - HYPERBILIRUBINAEMIA [None]
  - HYPERNATRAEMIA [None]
  - HYPERTENSION [None]
  - HYPOKALAEMIA [None]
  - JAUNDICE [None]
  - MENTAL STATUS CHANGES [None]
  - NEPHROPATHY TOXIC [None]
  - PLEURAL EFFUSION [None]
  - PLEURAL INFECTION [None]
  - PNEUMONIA [None]
  - PNEUMOTHORAX [None]
  - PULMONARY HAEMORRHAGE [None]
  - PULMONARY OEDEMA [None]
  - SEPSIS [None]
  - SPLENOMEGALY [None]
  - STAPHYLOCOCCAL INFECTION [None]
  - SUBDURAL HAEMATOMA [None]
  - THROMBOCYTOPENIA [None]
  - URINARY RETENTION [None]
  - URINARY TRACT INFECTION ENTEROCOCCAL [None]
  - VEILLONELLA INFECTION [None]
  - WHITE BLOOD CELL COUNT DECREASED [None]
  - WOUND INFECTION STAPHYLOCOCCAL [None]
